FAERS Safety Report 19192456 (Version 2)
Quarter: 2021Q2

REPORT INFORMATION
  Report Type: Report from Study
  Country: MX (occurrence: MX)
  Receive Date: 20210428
  Receipt Date: 20210615
  Transmission Date: 20210717
  Serious: Yes (Other)
  Sender: FDA-Public Use
  Company Number: NVSC2021MX091760

PATIENT
  Age: 68 Year
  Sex: Male
  Weight: 72 kg

DRUGS (2)
  1. DIOVAN [Suspect]
     Active Substance: VALSARTAN
     Dosage: 80 MG, QD
     Route: 048
     Dates: start: 202009, end: 202010
  2. DIOVAN [Suspect]
     Active Substance: VALSARTAN
     Indication: HYPERTENSION
     Dosage: 80 MG, QD  (STARTED 6 MONTHS AGO AND STOPPED 1 MONTH AGO)
     Route: 048

REACTIONS (4)
  - Ear haemorrhage [Recovered/Resolved]
  - Blood pressure abnormal [Recovered/Resolved]
  - Head discomfort [Recovered/Resolved]
  - Tinnitus [Recovered/Resolved]

NARRATIVE: CASE EVENT DATE: 202009
